FAERS Safety Report 5944485-8 (Version None)
Quarter: 2008Q4

REPORT INFORMATION
  Report Type: 
  Country: None (occurrence: None)
  Receive Date: 20081107
  Receipt Date: 20081002
  Transmission Date: 20090506
  Serious: No
  Sender: FDA-Public Use
  Company Number: A0751146A

PATIENT
  Age: 67 Year
  Sex: Female

DRUGS (9)
  1. HYCAMTIN [Suspect]
     Dosage: 4CAP PER DAY
     Route: 048
     Dates: start: 20080930
  2. CITALOPRAM [Concomitant]
  3. SIMVASTATIN [Concomitant]
  4. LEVOTHYROXINE SODIUM [Concomitant]
  5. ESTRADIOL [Concomitant]
  6. OMEPRAZOLE [Concomitant]
  7. CALCIUM + D [Concomitant]
  8. NORTRIPTYLINE HCL [Concomitant]
  9. TEMAZEPAM [Concomitant]

REACTIONS (2)
  - HEADACHE [None]
  - PAIN [None]
